FAERS Safety Report 7082879-0 (Version None)
Quarter: 2010Q4

REPORT INFORMATION
  Report Type: 
  Country: None (occurrence: None)
  Receive Date: 20101104
  Receipt Date: 20101020
  Transmission Date: 20110411
  Serious: Yes (Other)
  Sender: FDA-Public Use
  Company Number: PHHY2010JP57297

PATIENT
  Sex: Male
  Weight: 80 kg

DRUGS (7)
  1. DIOVAN HCT [Suspect]
     Indication: HYPERTENSION
     Dosage: ONE DOSAGE FORM (80/12.5 MG) DAILY
     Route: 048
     Dates: start: 20090426, end: 20100825
  2. WARFARIN [Concomitant]
     Indication: ISCHAEMIC HEART DISEASE PROPHYLAXIS
     Dosage: 2 MG
     Route: 048
     Dates: start: 20090426
  3. PIMENOL [Concomitant]
     Indication: ARRHYTHMIA
     Dosage: 50 MG
     Route: 048
     Dates: start: 20090426
  4. OMEPRAZON [Concomitant]
     Indication: REFLUX OESOPHAGITIS
     Dosage: 10 MG
     Route: 048
     Dates: start: 20090426
  5. VESICARE [Concomitant]
     Indication: HYPERTONIC BLADDER
     Dosage: 5 MG
     Route: 048
     Dates: start: 20090426
  6. TAMSULOSIN HCL [Concomitant]
     Dosage: 0.4 MG
     Route: 048
     Dates: start: 20090426
  7. EVIPROSTAT [Concomitant]
     Indication: BENIGN PROSTATIC HYPERPLASIA
     Dosage: UNK
     Route: 048
     Dates: start: 20090426

REACTIONS (2)
  - DIZZINESS [None]
  - HYPOTENSION [None]
